FAERS Safety Report 25157449 (Version 2)
Quarter: 2025Q2

REPORT INFORMATION
  Report Type: Spontaneous
  Country: NL (occurrence: NL)
  Receive Date: 20250403
  Receipt Date: 20250417
  Transmission Date: 20250717
  Serious: Yes (Other)
  Sender: INTERCHEM
  Company Number: NL-HQ SPECIALTY-NL-2025INT000023

PATIENT
  Age: 67 Year
  Sex: Male
  Weight: 114 kg

DRUGS (1)
  1. DEXMEDETOMIDINE HYDROCHLORIDE [Suspect]
     Active Substance: DEXMEDETOMIDINE HYDROCHLORIDE
     Indication: Restlessness
     Dosage: 42 MICROGRAM, QH
     Route: 042
     Dates: start: 20241120, end: 20241126

REACTIONS (2)
  - Sinus arrest [Recovered/Resolved]
  - Product use in unapproved indication [Unknown]

NARRATIVE: CASE EVENT DATE: 20240101
